FAERS Safety Report 10306096 (Version 3)
Quarter: 2014Q4

REPORT INFORMATION
  Report Type: Spontaneous
  Country: CA (occurrence: None)
  Receive Date: 20140711
  Receipt Date: 20141014
  Transmission Date: 20150528
  Serious: Yes (Other)
  Sender: FDA-Public Use
  Company Number: 2014-002027

PATIENT
  Sex: Female

DRUGS (1)
  1. ACTONEL [Suspect]
     Active Substance: RISEDRONATE SODIUM
     Route: 048
     Dates: start: 201305, end: 20131205

REACTIONS (6)
  - Bone pain [None]
  - Rhinorrhoea [None]
  - Diarrhoea [None]
  - Discomfort [None]
  - Faecal incontinence [None]
  - Joint stiffness [None]

NARRATIVE: CASE EVENT DATE: 2013
